FAERS Safety Report 15122368 (Version 1)
Quarter: 2018Q3

REPORT INFORMATION
  Report Type: Spontaneous
  Country: FR (occurrence: FR)
  Receive Date: 20180709
  Receipt Date: 20180709
  Transmission Date: 20181010
  Serious: Yes (Other)
  Sender: FDA-Public Use
  Company Number: FR-TEVA-2018-FR-922928

PATIENT
  Age: 75 Year
  Sex: Male
  Weight: 88 kg

DRUGS (2)
  1. VANCOMYCINE [Suspect]
     Active Substance: VANCOMYCIN
     Indication: ENDOCARDITIS
     Dosage: 2 FEMTOGRAM DAILY;
     Route: 042
     Dates: start: 20180514, end: 20180516
  2. RIFADINE [Concomitant]
     Active Substance: RIFAMPIN

REACTIONS (1)
  - Acute kidney injury [Recovering/Resolving]

NARRATIVE: CASE EVENT DATE: 20180516
